FAERS Safety Report 21918889 (Version 1)
Quarter: 2023Q1

REPORT INFORMATION
  Report Type: Spontaneous
  Country: US (occurrence: US)
  Receive Date: 20230127
  Receipt Date: 20230127
  Transmission Date: 20230417
  Serious: No
  Sender: FDA-Public Use
  Company Number: US-BEH-2023154537

PATIENT
  Sex: Female

DRUGS (1)
  1. HIZENTRA [Suspect]
     Active Substance: HUMAN IMMUNOGLOBULIN G
     Indication: Primary immunodeficiency syndrome
     Dosage: 12 GRAM, QOW
     Route: 058
     Dates: start: 20220510

REACTIONS (5)
  - Ill-defined disorder [Unknown]
  - Infection [Unknown]
  - Nausea [Unknown]
  - Lethargy [Unknown]
  - Headache [Unknown]
